FAERS Safety Report 7798280-8 (Version None)
Quarter: 2011Q4

REPORT INFORMATION
  Report Type: 
  Country: None (occurrence: None)
  Receive Date: 20111004
  Receipt Date: 20110920
  Transmission Date: 20120403
  Serious: Yes (Hospitalization)
  Sender: FDA-Public Use
  Company Number: 2011HGS-002441

PATIENT
  Age: 52 Year
  Sex: Female
  Weight: 65.318 kg

DRUGS (4)
  1. METHOTREXATE [Concomitant]
  2. BENLYSTA [Suspect]
     Indication: SYSTEMIC LUPUS ERYTHEMATOSUS
     Dosage: 10.1 MG/KG, 1 IN 14 D, INTRAVENOUS DRIP
     Route: 041
     Dates: start: 20110613, end: 20110801
  3. PLAQUENIL (HYDROXYCHLOROQUINE SULFATE) (HYDROXYCHLOROQUINE SULFATE0 [Concomitant]
  4. PREDNISONE [Concomitant]

REACTIONS (8)
  - INFUSION RELATED REACTION [None]
  - DEHYDRATION [None]
  - FATIGUE [None]
  - CEREBROVASCULAR ACCIDENT [None]
  - PAIN IN EXTREMITY [None]
  - ASTHENIA [None]
  - HYPOTENSION [None]
  - SPEECH DISORDER [None]
